FAERS Safety Report 8979470 (Version 2)
Quarter: 2012Q4

REPORT INFORMATION
  Report Type: 
  Country: DE (occurrence: DE)
  Receive Date: 20121221
  Receipt Date: 20121228
  Transmission Date: 20130627
  Serious: Yes (Hospitalization)
  Sender: FDA-Public Use
  Company Number: DE-TEVA-375655GER

PATIENT
  Age: 22 Year
  Sex: Male

DRUGS (1)
  1. PREDNISOLONE [Suspect]
     Indication: POLYARTHRITIS
     Route: 065

REACTIONS (6)
  - Lipoma [Recovered/Resolved]
  - Paraparesis [Recovering/Resolving]
  - Spastic paraplegia [Recovered/Resolved]
  - Incontinence [Unknown]
  - Fat redistribution [Unknown]
  - Skin disorder [Unknown]
